FAERS Safety Report 12905165 (Version 1)
Quarter: 2016Q4

REPORT INFORMATION
  Report Type: Spontaneous
  Country: GB (occurrence: GB)
  Receive Date: 20161102
  Receipt Date: 20161102
  Transmission Date: 20170207
  Serious: Yes (Other)
  Sender: FDA-Public Use
  Company Number: GB-JNJFOC-20161023768

PATIENT
  Age: 28 Year
  Sex: Male
  Weight: 66 kg

DRUGS (7)
  1. MIRTAZAPINE. [Concomitant]
     Active Substance: MIRTAZAPINE
     Indication: PRODUCT USED FOR UNKNOWN INDICATION
     Dosage: DOSE-1 (UNIT NOT REPORTED) AT NIGHT, CUMULATIVE DOSE- 7 (UNIT NOT REPORTED)
     Route: 065
     Dates: start: 20161006
  2. SALBUTAMOL [Concomitant]
     Active Substance: ALBUTEROL
     Indication: PRODUCT USED FOR UNKNOWN INDICATION
     Dosage: DOSE- 2 (UNIT NOT REPORTED), AS REQUIRED
     Route: 065
     Dates: start: 20160603
  3. FLUOXETINE [Concomitant]
     Active Substance: FLUOXETINE HYDROCHLORIDE
     Indication: PRODUCT USED FOR UNKNOWN INDICATION
     Dosage: DOSE-1 (UNIT NOT REPORTED), CUMULATIVE DOSAGE- 98 (UNIT NOT REPORTED)
     Route: 065
     Dates: start: 20160707, end: 20160921
  4. CLENIL MODULITE [Concomitant]
     Active Substance: BECLOMETHASONE DIPROPIONATE
     Indication: PRODUCT USED FOR UNKNOWN INDICATION
     Dosage: DOSE-1 (UNIT NOT REPORTED),DOSAGE: (08:00-10)(16:00-1), CUMULATIVE DOSAGE- 264.0 (UNIT NOT REPORTED)
     Route: 065
     Dates: start: 20160603, end: 20160921
  5. METHADONE [Concomitant]
     Active Substance: METHADONE HYDROCHLORIDE
     Indication: PRODUCT USED FOR UNKNOWN INDICATION
     Dosage: DOSE: 25 (UNIT NOT REPORTED)
     Route: 065
     Dates: start: 20160908, end: 20160921
  6. IBUPROFEN. [Suspect]
     Active Substance: IBUPROFEN
     Route: 065
  7. IBUPROFEN. [Suspect]
     Active Substance: IBUPROFEN
     Indication: PRODUCT USED FOR UNKNOWN INDICATION
     Route: 065
     Dates: start: 20161013

REACTIONS (2)
  - Rash [Recovered/Resolved]
  - Chest discomfort [Recovered/Resolved]

NARRATIVE: CASE EVENT DATE: 20161013
